FAERS Safety Report 10527200 (Version 3)
Quarter: 2014Q4

REPORT INFORMATION
  Report Type: Spontaneous
  Country: BH (occurrence: BH)
  Receive Date: 20141020
  Receipt Date: 20141114
  Transmission Date: 20150528
  Serious: Yes (Death, Hospitalization, Other)
  Sender: FDA-Public Use
  Company Number: BH-JNJFOC-20141002342

PATIENT
  Age: 41 Year
  Sex: Female
  Weight: 78.4 kg

DRUGS (4)
  1. REMICADE [Suspect]
     Active Substance: INFLIXIMAB
     Indication: CROHN^S DISEASE
     Dosage: 5MG/KG
     Route: 042
     Dates: start: 20140828
  2. PENTASA [Concomitant]
     Active Substance: MESALAMINE
     Indication: CROHN^S DISEASE
     Route: 065
     Dates: start: 201308, end: 20141005
  3. IMURAN [Concomitant]
     Active Substance: AZATHIOPRINE
     Indication: CROHN^S DISEASE
     Route: 065
     Dates: start: 201308, end: 20141005
  4. REMICADE [Suspect]
     Active Substance: INFLIXIMAB
     Indication: CROHN^S DISEASE
     Route: 042
     Dates: start: 20140911

REACTIONS (10)
  - Musculoskeletal pain [Not Recovered/Not Resolved]
  - Toxic encephalopathy [Unknown]
  - Pneumonia [Unknown]
  - Drug-induced liver injury [Unknown]
  - Febrile neutropenia [Unknown]
  - Clostridium difficile infection [Unknown]
  - Abdominal sepsis [Fatal]
  - Ascites [Unknown]
  - Splenic cyst [Unknown]
  - Gallbladder disorder [Unknown]

NARRATIVE: CASE EVENT DATE: 20140920
